FAERS Safety Report 16662954 (Version 1)
Quarter: 2019Q3

REPORT INFORMATION
  Report Type: Spontaneous
  Country: NL (occurrence: NL)
  Receive Date: 20190802
  Receipt Date: 20190802
  Transmission Date: 20191004
  Serious: Yes (Hospitalization)
  Sender: FDA-Public Use
  Company Number: NL-EXELIXIS-CABO-19020634

PATIENT
  Age: 64 Year
  Sex: Male
  Weight: 98 kg

DRUGS (8)
  1. MACROGOL [Concomitant]
     Active Substance: POLYETHYLENE GLYCOLS
     Dosage: 20 MG, QD (1DD1)
  2. IOVERSOL [Concomitant]
     Active Substance: IOVERSOL
     Dosage: 97 ML, QD, 1DD97ML
  3. CABOMETYX [Suspect]
     Active Substance: CABOZANTINIB S-MALATE
     Indication: RENAL CELL CARCINOMA
     Dosage: 40 MG (1X PER DAY 1 PIECE)
     Dates: start: 20181116, end: 20190312
  4. PAROXETINE. [Concomitant]
     Active Substance: PAROXETINE
     Dosage: 20 MG, QD (1DD20MG)
  5. SIMVASTATINE [Concomitant]
     Active Substance: SIMVASTATIN
     Dosage: 1DD1
  6. NATRIUM HYDROGENCARBONATE [Concomitant]
     Dosage: 250 ML/UUR
  7. CHLORHEXIDINE HCL [Concomitant]
     Dosage: 2DD15ML (HOURLY)
  8. NATRIUMCHLORIDE [Concomitant]
     Active Substance: SODIUM CHLORIDE
     Dosage: 21 ML/UUR

REACTIONS (1)
  - Pancreatitis acute [Recovered/Resolved with Sequelae]

NARRATIVE: CASE EVENT DATE: 20190218
